FAERS Safety Report 9530674 (Version 2)
Quarter: 2013Q3

REPORT INFORMATION
  Report Type: Report from Study
  Country: US (occurrence: US)
  Receive Date: 20130918
  Receipt Date: 20130918
  Transmission Date: 20140515
  Serious: Yes (Hospitalization)
  Sender: FDA-Public Use
  Company Number: US-ROCHE-1246894

PATIENT
  Age: 78 Year
  Sex: Male
  Weight: 82.63 kg

DRUGS (2)
  1. XELODA [Suspect]
     Indication: COLON CANCER METASTATIC
     Route: 048
     Dates: start: 20130617
  2. DIGOXIN [Concomitant]

REACTIONS (13)
  - Eye pain [Not Recovered/Not Resolved]
  - Eye pruritus [Not Recovered/Not Resolved]
  - Ocular hyperaemia [Not Recovered/Not Resolved]
  - Lacrimation increased [Not Recovered/Not Resolved]
  - Eye infection [Recovered/Resolved]
  - Lacrimation increased [Not Recovered/Not Resolved]
  - Lip pain [Recovered/Resolved]
  - Muscle tightness [Not Recovered/Not Resolved]
  - Skin discolouration [Recovered/Resolved]
  - Diarrhoea [Recovered/Resolved]
  - Dehydration [Recovered/Resolved]
  - Hypophagia [Recovered/Resolved]
  - Asthenia [Unknown]
